FAERS Safety Report 9364179 (Version 1)
Quarter: 2013Q2

REPORT INFORMATION
  Report Type: Spontaneous
  Country: IT (occurrence: IT)
  Receive Date: 20130624
  Receipt Date: 20130624
  Transmission Date: 20140414
  Serious: Yes (Other)
  Sender: FDA-Public Use
  Company Number: IT-PFIZER INC-2013184380

PATIENT
  Age: 48 Year
  Sex: Female

DRUGS (2)
  1. XANAX [Suspect]
     Dosage: 20 ML, TOTAL DOSAGE
     Route: 048
     Dates: start: 20130530, end: 20130530
  2. XANAX [Suspect]
     Dosage: 20 MG, UNK
     Route: 048
     Dates: start: 20130530, end: 20130530

REACTIONS (3)
  - Overdose [Recovered/Resolved]
  - Drug abuse [Recovered/Resolved]
  - Sopor [Recovered/Resolved]
